FAERS Safety Report 24707317 (Version 1)
Quarter: 2024Q4

REPORT INFORMATION
  Report Type: Other
  Country: US (occurrence: US)
  Receive Date: 20241206
  Receipt Date: 20241206
  Transmission Date: 20250114
  Serious: No
  Sender: SCIEGEN PHARMACEUTICALS INC
  Company Number: US-SCIEGENP-2024SCSPO00413

PATIENT

DRUGS (1)
  1. BUPROPION HYDROCHLORIDE [Suspect]
     Active Substance: BUPROPION HYDROCHLORIDE
     Indication: Product used for unknown indication
     Route: 065

REACTIONS (7)
  - Impaired quality of life [Unknown]
  - Thinking abnormal [Unknown]
  - Irritability [Unknown]
  - Aggression [Unknown]
  - Insomnia [Unknown]
  - Product substitution issue [Unknown]
  - Therapeutic response decreased [Unknown]
